FAERS Safety Report 4870314-X (Version None)
Quarter: 2005Q4

REPORT INFORMATION
  Report Type: 
  Country: None (occurrence: None)
  Receive Date: 20051228
  Receipt Date: 20051214
  Transmission Date: 20060501
  Serious: Yes (Life-Threatening, Other)
  Sender: FDA-Public Use
  Company Number: CA200512001025

PATIENT
  Age: 13 Year
  Sex: Male

DRUGS (7)
  1. STRATTERA [Suspect]
     Dosage: 40 + 60 + 80 MG, DAILY (/D), ORAL
     Route: 048
     Dates: start: 20050801, end: 20050801
  2. STRATTERA [Suspect]
     Dosage: 40 + 60 + 80 MG, DAILY (/D), ORAL
     Route: 048
     Dates: start: 20050801, end: 20051001
  3. STRATTERA [Suspect]
     Dosage: 40 + 60 + 80 MG, DAILY (/D), ORAL
     Route: 048
     Dates: start: 20051001, end: 20051101
  4. STRATTERA [Suspect]
     Dosage: 40 + 60 + 80 MG, DAILY (/D), ORAL
     Route: 048
     Dates: start: 20051101, end: 20051201
  5. BENZACLIN (BENZOYL PEROXIDE, CLINDAMYCIN) [Concomitant]
  6. PNEUMOVAX 23 [Concomitant]
  7. PREVNAR (PNEUMOCOCCAL CONJUGATE VACCINE) [Concomitant]

REACTIONS (2)
  - INTENTIONAL SELF-INJURY [None]
  - SUICIDE ATTEMPT [None]
